FAERS Safety Report 23048829 (Version 1)
Quarter: 2023Q4

REPORT INFORMATION
  Report Type: Spontaneous
  Country: US (occurrence: US)
  Receive Date: 20231010
  Receipt Date: 20231010
  Transmission Date: 20240110
  Serious: Yes (Death, Other)
  Sender: FDA-Public Use
  Company Number: US-AMGEN-USASP2023176218

PATIENT

DRUGS (2)
  1. FILGRASTIM [Suspect]
     Active Substance: FILGRASTIM
     Indication: Acute myeloid leukaemia
     Dosage: UNK
     Route: 065
  2. CYTARABINE [Concomitant]
     Active Substance: CYTARABINE
     Dosage: UNK
     Route: 065

REACTIONS (37)
  - Death [Fatal]
  - Febrile neutropenia [Unknown]
  - Bacteraemia [Unknown]
  - Clostridium difficile infection [Unknown]
  - Enterocolitis [Unknown]
  - Pneumonia [Unknown]
  - Sepsis [Unknown]
  - Cardiac arrest [Unknown]
  - Cardiomyopathy [Unknown]
  - Pericarditis [Unknown]
  - Myocardial infarction [Unknown]
  - Ventricular fibrillation [Unknown]
  - Adenocarcinoma of colon [Unknown]
  - Hypokalaemia [Unknown]
  - Tumour lysis syndrome [Unknown]
  - Delirium [Unknown]
  - Depressed level of consciousness [Unknown]
  - Haemorrhage intracranial [Unknown]
  - Oral infection [Unknown]
  - Sinusitis [Unknown]
  - Soft tissue infection [Unknown]
  - Headache [Unknown]
  - Troponin increased [Unknown]
  - Upper respiratory tract infection [Unknown]
  - Diarrhoea [Unknown]
  - Blood bilirubin increased [Unknown]
  - Alanine aminotransferase increased [Unknown]
  - Activated partial thromboplastin time prolonged [Unknown]
  - Hyperglycaemia [Unknown]
  - Aspartate aminotransferase increased [Unknown]
  - Hypertension [Unknown]
  - Proctalgia [Unknown]
  - Hypotension [Unknown]
  - Anal fissure [Unknown]
  - Hyponatraemia [Unknown]
  - Abdominal pain [Unknown]
  - Dental caries [Unknown]
